FAERS Safety Report 9348931 (Version 1)
Quarter: 2013Q2

REPORT INFORMATION
  Report Type: Spontaneous
  Country: US (occurrence: US)
  Receive Date: 20130614
  Receipt Date: 20130614
  Transmission Date: 20140414
  Serious: No
  Sender: FDA-Public Use
  Company Number: US-009507513-1306USA005262

PATIENT
  Sex: 0

DRUGS (1)
  1. NUVARING [Suspect]
     Indication: CONTRACEPTION
     Dosage: THREE WEEKS IN, ONE WEEK OUT
     Route: 063
     Dates: start: 201304

REACTIONS (2)
  - Cough [Unknown]
  - Exposure during breast feeding [Unknown]
